FAERS Safety Report 5239708-7 (Version None)
Quarter: 2007Q1

REPORT INFORMATION
  Report Type: 
  Country: None (occurrence: None)
  Receive Date: 20070216
  Receipt Date: 20070205
  Transmission Date: 20070707
  Serious: Yes (Life-Threatening)
  Sender: FDA-Public Use
  Company Number: JP-ROCHE-481985

PATIENT
  Age: 20 Year
  Sex: Male

DRUGS (1)
  1. TAMIFLU [Suspect]
     Route: 048
     Dates: start: 20070204, end: 20070204

REACTIONS (2)
  - ABNORMAL BEHAVIOUR [None]
  - HYPERVENTILATION [None]
